FAERS Safety Report 4607276-6 (Version None)
Quarter: 2005Q1

REPORT INFORMATION
  Report Type: 
  Country: None (occurrence: None)
  Receive Date: 20050309
  Receipt Date: 20050224
  Transmission Date: 20050727
  Serious: Yes (Hospitalization, Other)
  Sender: FDA-Public Use
  Company Number: HQWYE553024FEB05

PATIENT
  Age: 49 Year
  Sex: Male

DRUGS (3)
  1. PANTOPRAZOLE SODIUM [Suspect]
     Dosage: 40 MG 2X PER 1 DAY, INTRAVENOUS
     Route: 042
     Dates: start: 20040915, end: 20041015
  2. NEXIUM [Suspect]
     Dosage: 40 MG 1X PER 1 DAY, ORAL
     Route: 048
     Dates: start: 20041015, end: 20041022
  3. OFLOXACIN [Suspect]
     Dosage: 200 MG  2X PER 1 DAY
     Dates: start: 20041006, end: 20041022

REACTIONS (2)
  - GASTROINTESTINAL HAEMORRHAGE [None]
  - THROMBOCYTOPENIA [None]
